FAERS Safety Report 18598895 (Version 1)
Quarter: 2020Q4

REPORT INFORMATION
  Report Type: Spontaneous
  Country: US (occurrence: US)
  Receive Date: 20201210
  Receipt Date: 20201210
  Transmission Date: 20210114
  Serious: No
  Sender: FDA-Public Use
  Company Number: US-TEVA-2020-US-1857493

PATIENT

DRUGS (1)
  1. DOCETAXEL INJECTION [Suspect]
     Active Substance: DOCETAXEL
     Route: 065
     Dates: start: 201401, end: 201601

REACTIONS (2)
  - Alopecia [Unknown]
  - Madarosis [Unknown]
